FAERS Safety Report 14834097 (Version 1)
Quarter: 2018Q2

REPORT INFORMATION
  Report Type: Spontaneous
  Country: US (occurrence: US)
  Receive Date: 20180501
  Receipt Date: 20180501
  Transmission Date: 20180711
  Serious: No
  Sender: FDA-Public Use
  Company Number: US-ROCHE-2077380

PATIENT
  Age: 74 Year
  Sex: Male
  Weight: 97.61 kg

DRUGS (2)
  1. AVASTIN [Suspect]
     Active Substance: BEVACIZUMAB
     Indication: PRODUCT USED FOR UNKNOWN INDICATION
     Dosage: 10MG/KG ;ONGOING: NO
     Route: 042
     Dates: start: 2015, end: 2017
  2. AVASTIN [Suspect]
     Active Substance: BEVACIZUMAB
     Dosage: 10MG/KG ;ONGOING: YES
     Route: 042
     Dates: start: 201801

REACTIONS (3)
  - Blood urea abnormal [Unknown]
  - Proteinuria [Unknown]
  - Blood creatinine increased [Unknown]

NARRATIVE: CASE EVENT DATE: 2017
